FAERS Safety Report 4270747-9 (Version None)
Quarter: 2004Q1

REPORT INFORMATION
  Report Type: 
  Country: None (occurrence: None)
  Receive Date: 20040114
  Receipt Date: 19971001
  Transmission Date: 20041129
  Serious: Yes (Hospitalization, Disabling)
  Sender: FDA-Public Use
  Company Number: US-ROCHE-87683

PATIENT
  Age: 22 Year
  Sex: Female

DRUGS (5)
  1. ACCUTANE [Suspect]
     Route: 048
     Dates: start: 19950923, end: 19951003
  2. ACCUTANE [Suspect]
     Route: 048
     Dates: start: 19951004, end: 19951120
  3. PREVACID [Concomitant]
  4. PREDNISONE [Concomitant]
     Dates: start: 19970424
  5. ORTHO TRI-CYCLEN [Concomitant]

REACTIONS (21)
  - ARTHRALGIA [None]
  - BILIARY DYSKINESIA [None]
  - CHOLECYSTITIS [None]
  - CHRONIC FATIGUE SYNDROME [None]
  - COLITIS ULCERATIVE [None]
  - CROHN'S DISEASE [None]
  - DECREASED APPETITE [None]
  - DIZZINESS [None]
  - DRY SKIN [None]
  - EPISCLERITIS [None]
  - GASTRITIS [None]
  - HAEMATOCHEZIA [None]
  - HEADACHE [None]
  - MUSCULAR WEAKNESS [None]
  - MYALGIA [None]
  - NAUSEA [None]
  - OPTIC DISC DRUSEN [None]
  - POLYARTHRITIS [None]
  - RADICULITIS BRACHIAL [None]
  - TENDONITIS [None]
  - VIRAL INFECTION [None]
